FAERS Safety Report 8716911 (Version 2)
Quarter: 2012Q4

REPORT INFORMATION
  Report Type: Report from Study
  Country: CA (occurrence: CA)
  Receive Date: 20120810
  Receipt Date: 20121219
  Transmission Date: 20130627
  Serious: Yes (Other)
  Sender: FDA-Public Use
  Company Number: CA-JNJFOC-20120800772

PATIENT
  Age: 28 None
  Sex: Female
  Weight: 130 kg

DRUGS (5)
  1. REMICADE [Suspect]
     Indication: CROHN^S DISEASE
     Route: 042
     Dates: start: 20101217, end: 20120613
  2. PREDNISONE [Concomitant]
     Route: 065
  3. 6-MP [Concomitant]
     Route: 065
  4. CLONAZEPAM [Concomitant]
     Route: 065
  5. CELEXA [Concomitant]
     Route: 065

REACTIONS (6)
  - Eye disorder [Not Recovered/Not Resolved]
  - Colour blindness [Not Recovered/Not Resolved]
  - Visual acuity reduced [Not Recovered/Not Resolved]
  - Eye pain [Not Recovered/Not Resolved]
  - Blindness [Not Recovered/Not Resolved]
  - Crohn^s disease [Not Recovered/Not Resolved]
